FAERS Safety Report 7211462-9 (Version None)
Quarter: 2011Q1

REPORT INFORMATION
  Report Type: 
  Country: None (occurrence: None)
  Receive Date: 20110105
  Receipt Date: 20101227
  Transmission Date: 20110831
  Serious: Yes (Hospitalization, Other)
  Sender: FDA-Public Use
  Company Number: ES-ASTRAZENECA-2010SE51342

PATIENT
  Age: 65 Year
  Sex: Male

DRUGS (5)
  1. AAS [Concomitant]
     Indication: ISCHAEMIC CARDIOMYOPATHY
  2. CRESTOR [Suspect]
     Indication: HYPERLIPIDAEMIA
     Route: 048
     Dates: start: 20100817, end: 20101014
  3. ENALAPRIL [Concomitant]
     Indication: HYPERTENSION
  4. CRESTOR [Suspect]
     Indication: HYPERCHOLESTEROLAEMIA
     Route: 048
     Dates: start: 20100817, end: 20101014
  5. CARVEDILOL [Concomitant]
     Indication: ISCHAEMIC CARDIOMYOPATHY

REACTIONS (4)
  - RENAL FAILURE ACUTE [None]
  - MYALGIA [None]
  - DECREASED APPETITE [None]
  - ASTHENIA [None]
